FAERS Safety Report 7380542-X (Version None)
Quarter: 2011Q1

REPORT INFORMATION
  Report Type: 
  Country: None (occurrence: None)
  Receive Date: 20110329
  Receipt Date: 20110322
  Transmission Date: 20110831
  Serious: Yes (Life-Threatening)
  Sender: FDA-Public Use
  Company Number: US-GENZYME-CLOF-1001331

PATIENT
  Sex: Female
  Weight: 58.8 kg

DRUGS (74)
  1. DEMEROL [Concomitant]
     Indication: CHILLS
     Dosage: 25 MG, PRN
     Route: 061
     Dates: start: 20101119, end: 20101119
  2. ZOFRAN [Concomitant]
     Indication: NAUSEA
     Dosage: 8 MG, PRN
     Route: 042
     Dates: start: 20101120, end: 20101214
  3. BACTRIM [Concomitant]
     Indication: PROPHYLAXIS
     Dosage: 160 MG, UNK
     Route: 048
     Dates: start: 20101113
  4. MICAFUNGIN [Concomitant]
     Indication: ANTIFUNGAL TREATMENT
     Dosage: 50 MG, UNK
     Route: 042
     Dates: start: 20101116, end: 20101117
  5. FUROSEMIDE [Concomitant]
     Indication: DIURETIC THERAPY
     Dosage: 40 MG, UNK
     Route: 042
     Dates: start: 20101113, end: 20101129
  6. REGULAR INSULIN [Concomitant]
  7. METHADONE [Concomitant]
     Dosage: 10 MG, UNK
     Route: 048
     Dates: start: 20101223
  8. CYCLOPHOSPHAMIDE [Suspect]
     Indication: ACUTE LYMPHOCYTIC LEUKAEMIA
     Dosage: 725 MG, QDX5
     Route: 042
     Dates: start: 20101111, end: 20101115
  9. ROBITUSSIN A-C [Concomitant]
     Indication: COUGH
     Dosage: 5 ML, PRN
     Route: 048
     Dates: start: 20101120, end: 20101123
  10. CLARITIN [Concomitant]
     Indication: MULTIPLE ALLERGIES
     Dosage: 10 MG, UNK
     Route: 048
     Dates: start: 20101116, end: 20101123
  11. ENOXAPARIN [Concomitant]
     Indication: ANTICOAGULANT THERAPY
     Dosage: 90 MG, UNK
     Route: 058
     Dates: start: 20101222
  12. ESTRADIOL TRANSDERMAL [Concomitant]
     Indication: MENORRHAGIA
     Dosage: .025 MG, UNK
     Route: 062
     Dates: start: 20101202, end: 20101221
  13. CLOFARABINE [Suspect]
     Indication: ACUTE LYMPHOCYTIC LEUKAEMIA
     Dosage: 66 MG, QDX5
     Route: 042
     Dates: start: 20101111, end: 20101115
  14. ATIVAN [Concomitant]
     Indication: NAUSEA
     Dosage: 1 MG, PRN
     Route: 042
     Dates: start: 20101113, end: 20101222
  15. MORPHINE [Concomitant]
     Indication: PAIN
     Dosage: 2 MG, PRN
     Dates: start: 20101112, end: 20101223
  16. ZOFRAN [Concomitant]
     Dosage: 24 MG, UNK
     Route: 042
     Dates: start: 20101111, end: 20101119
  17. ALLOPURINOL [Concomitant]
     Indication: PROPHYLAXIS
     Dosage: 200 MG, UNK
     Route: 048
     Dates: start: 20101110, end: 20101113
  18. MICAFUNGIN [Concomitant]
     Dosage: 100 MG, UNK
     Route: 042
     Dates: start: 20101126, end: 20101223
  19. AMINOCAPROIC ACID [Concomitant]
     Indication: GASTROINTESTINAL HAEMORRHAGE
     Dosage: 5000 MG, UNK
     Route: 042
     Dates: start: 20101212, end: 20101212
  20. BACITRACIN [Concomitant]
     Indication: WOUND
     Dosage: UNK
     Route: 061
     Dates: start: 20101207, end: 20101219
  21. CALCIUM CHLORIDE [Concomitant]
     Indication: HYPOCALCAEMIA
     Dosage: 7 OTHER, UNK
     Route: 042
     Dates: start: 20101129, end: 20101220
  22. DIAZEPAM [Concomitant]
     Dosage: 7 MG, UNK
     Route: 048
     Dates: start: 20101215
  23. EPOETIN ALFA [Concomitant]
     Indication: ANAEMIA
     Dosage: 8820 U, UNK
     Route: 058
     Dates: start: 20101128, end: 20101128
  24. PHENOBARBITAL TAB [Concomitant]
     Indication: SEDATION
     Dosage: UNK
     Route: 042
     Dates: start: 20101201, end: 20101225
  25. RISPERIDONE [Concomitant]
     Indication: AGITATION
     Dosage: 1 MG, UNK
     Route: 048
     Dates: start: 20101226, end: 20101226
  26. METHOTREXATE [Suspect]
     Indication: ACUTE LYMPHOCYTIC LEUKAEMIA
     Dosage: 15 MG, ONCE
     Route: 037
     Dates: start: 20101110, end: 20101110
  27. EMLA [Concomitant]
     Indication: PAIN
     Dosage: 2.50 %, UNK
     Route: 061
     Dates: start: 20101112, end: 20101124
  28. LEUCOVORIN [Concomitant]
     Indication: PROPHYLAXIS
     Dosage: 7.5 MG, UNK
     Route: 048
     Dates: start: 20101112, end: 20101113
  29. POSACONAZOLE [Concomitant]
     Indication: ANTIFUNGAL TREATMENT
     Dosage: 200 MG, UNK
     Route: 048
     Dates: start: 20101116, end: 20101116
  30. SOLUTIONS FOR PARENTERAL NUTRITION [Concomitant]
     Indication: MEDICAL DIET
     Dosage: 2160 ML, UNK
     Route: 042
     Dates: start: 20101122, end: 20101127
  31. PROMETHAZINE [Concomitant]
     Indication: NAUSEA
     Dosage: 12.5 MG, UNK
     Route: 042
     Dates: start: 20101112, end: 20101122
  32. METOCLOPRAMIDE [Concomitant]
     Indication: CONSTIPATION PROPHYLAXIS
     Dosage: 2.88 MG, UNK
     Route: 042
     Dates: start: 20101127, end: 20110103
  33. FENTANYL [Concomitant]
     Indication: PAIN
     Dosage: 2 MCG/KG/HR, UNK
     Route: 042
     Dates: start: 20101126, end: 20101205
  34. LORAZEPAM [Concomitant]
     Indication: AGITATION
  35. CIPROFLOXACIN [Concomitant]
     Dosage: 400 MG, UNK
     Route: 048
     Dates: start: 20101223, end: 20101227
  36. HYDROMORPHONE HCL [Concomitant]
     Indication: PAIN
     Dosage: 1.0 OTHER, UNK
     Route: 042
     Dates: start: 20101223, end: 20101231
  37. CALMOSEPTINE [Concomitant]
     Indication: DRY SKIN
     Dosage: UNK
     Route: 061
     Dates: start: 20101114, end: 20101121
  38. MIRALAX [Concomitant]
     Indication: CONSTIPATION
     Dosage: 17 G, PRN
     Route: 048
     Dates: start: 20101112, end: 20101226
  39. CLINDAMYCIN [Concomitant]
     Indication: ANTI-INFECTIVE THERAPY
     Dosage: 600 MG, UNK
     Route: 042
     Dates: start: 20101112, end: 20101116
  40. MIDAZOLAM [Concomitant]
     Indication: AGITATION
     Dosage: 2 MG, PRN
     Route: 042
     Dates: start: 20101124, end: 20101218
  41. METOCLOPRAMIDE [Concomitant]
     Dosage: 11.76 MG, UNK
     Route: 048
     Dates: start: 20101127, end: 20110103
  42. CIPROFLOXACIN [Concomitant]
     Indication: ANTI-INFECTIVE THERAPY
     Dosage: 400 MG, UNK
     Route: 042
     Dates: start: 20101223, end: 20101227
  43. DEXMEDETOMIDINE HYDROCHLORIDE [Concomitant]
     Indication: SEDATION
     Dosage: UNK
     Route: 042
     Dates: start: 20101212, end: 20101225
  44. HYDRALAZINE HCL [Concomitant]
     Indication: HYPERTENSION
     Dosage: 20 MG, UNK
     Route: 042
     Dates: start: 20101201, end: 20101202
  45. REGULAR INSULIN [Concomitant]
     Indication: PROPHYLAXIS
     Dosage: UNK
     Route: 042
     Dates: start: 20101126, end: 20101210
  46. SARNA [Concomitant]
     Indication: DRY SKIN
     Dosage: 0.5 %, PRN
     Route: 061
     Dates: start: 20101117, end: 20101117
  47. BENADRYL [Concomitant]
     Indication: PREMEDICATION
     Dosage: 50 MG, PRN
     Route: 042
     Dates: start: 20101117, end: 20101231
  48. LASIX [Concomitant]
     Indication: DIURETIC THERAPY
     Dosage: 40 MG, PRN
     Route: 042
     Dates: start: 20101113
  49. SOLU-CORTEF [Concomitant]
     Indication: PREMEDICATION
     Dosage: 165 MG, UNK
     Route: 042
     Dates: start: 20101111, end: 20101115
  50. DIAZEPAM [Concomitant]
     Indication: SEDATION
     Dosage: 7 MG, UNK
     Route: 042
     Dates: start: 20101215
  51. ESOMEPRAZOLE [Concomitant]
     Indication: PROPHYLAXIS
     Dosage: 40 MG, UNK
     Route: 042
     Dates: start: 20101129, end: 20110101
  52. KETAMINE HCL [Concomitant]
     Indication: SEDATION
     Dosage: 117.6 MG, UNK
     Route: 042
     Dates: start: 20101224, end: 20101224
  53. LIPIDS NOS [Concomitant]
     Indication: NUTRITIONAL SUPPORT
     Dosage: UNK
     Route: 042
     Dates: start: 20101122, end: 20101220
  54. MILRINONE [Concomitant]
     Indication: ANGIOPATHY
     Dosage: UNK
     Route: 042
     Dates: start: 20101201, end: 20101206
  55. NICARDIPINE HYDROCHLORIDE [Concomitant]
     Indication: HYPERTENSION
     Dosage: UNK
     Route: 042
     Dates: start: 20101212, end: 20101217
  56. POTASSIUM CHLORIDE [Concomitant]
     Indication: HYPOKALAEMIA
     Dosage: UNK
     Route: 042
     Dates: start: 20101129, end: 20101204
  57. ETOPOSIDE [Suspect]
     Indication: ACUTE LYMPHOCYTIC LEUKAEMIA
     Dosage: 165 MG, QDX5
     Route: 042
     Dates: start: 20101111, end: 20101115
  58. NEURONTIN [Concomitant]
     Indication: PAIN
     Dosage: 100 MG, UNK
     Route: 048
     Dates: start: 20101110, end: 20101123
  59. NORCO [Concomitant]
     Indication: PAIN
     Dosage: 325 MG, UNK
     Route: 048
     Dates: start: 20101114, end: 20101124
  60. VERSED [Concomitant]
     Indication: SEDATION
     Dosage: 15 MG, UNK
     Route: 048
     Dates: start: 20101119, end: 20101119
  61. FORTAZ [Concomitant]
     Indication: ANTI-INFECTIVE THERAPY
     Dosage: 2000 MG, UNK
     Route: 042
     Dates: start: 20101111, end: 20101117
  62. LORAZEPAM [Concomitant]
     Indication: SEDATION
     Dosage: .15 OTHER, UNK
     Route: 042
     Dates: start: 20101126, end: 20101211
  63. CLONIDINE [Concomitant]
     Indication: BLOOD PRESSURE MANAGEMENT
     Dosage: 0.1 MG, UNK
     Route: 062
     Dates: start: 20101201
  64. D5LRS [Concomitant]
     Indication: FLUID REPLACEMENT
     Dosage: UNK
     Route: 042
     Dates: start: 20101110, end: 20101229
  65. ESOMEPRAZOLE [Concomitant]
     Dosage: 40 MG, UNK
     Route: 048
     Dates: start: 20101129, end: 20110101
  66. GLUCOSE OXIDASE [Concomitant]
     Indication: DENTAL DISORDER PROPHYLAXIS
     Dosage: 10 ML, UNK
     Route: 048
     Dates: start: 20101201
  67. METHADONE [Concomitant]
     Indication: SEDATION
     Dosage: 10 MG, UNK
     Route: 042
     Dates: start: 20101223
  68. EUCERIN [Concomitant]
     Indication: DRY SKIN
     Dosage: UNK
     Route: 061
     Dates: start: 20101117, end: 20101223
  69. PHENERGAN [Concomitant]
     Indication: NAUSEA
     Dosage: 21.5 MG, PRN
     Route: 042
     Dates: start: 20101112
  70. ZOFRAN [Concomitant]
     Dosage: 24 MG, UNK
     Route: 042
     Dates: start: 20101111, end: 20101120
  71. FENTANYL [Concomitant]
     Indication: SEDATION
     Dosage: 100 OTHER, UNK
     Route: 062
     Dates: start: 20101217, end: 20101221
  72. VECURONIUM BROMIDE [Concomitant]
     Indication: SEDATION
     Dosage: .05 OTHER, UNK
     Route: 042
     Dates: start: 20101125, end: 20101220
  73. MAGNESIUM SULFATE [Concomitant]
     Indication: HYPOMAGNESAEMIA
     Dosage: 1470 MG, UNK
     Route: 042
     Dates: start: 20101222, end: 20101222
  74. ROCURONIUM [Concomitant]
     Indication: SEDATION
     Dosage: 60 MG, UNK
     Route: 042
     Dates: start: 20101125, end: 20101225

REACTIONS (6)
  - HYPERNATRAEMIA [None]
  - BLOOD BILIRUBIN INCREASED [None]
  - PNEUMONITIS [None]
  - HYPOTENSION [None]
  - PNEUMONIA RESPIRATORY SYNCYTIAL VIRAL [None]
  - ACUTE RESPIRATORY DISTRESS SYNDROME [None]
